FAERS Safety Report 6525875-1 (Version None)
Quarter: 2010Q1

REPORT INFORMATION
  Report Type: 
  Country: None (occurrence: None)
  Receive Date: 20100104
  Receipt Date: 20091228
  Transmission Date: 20100710
  Serious: Yes (Other)
  Sender: FDA-Public Use
  Company Number: B0622421A

PATIENT
  Age: 70 Year
  Sex: Male

DRUGS (3)
  1. DILATREND [Suspect]
     Indication: HYPERTENSION
     Dosage: 12.5MG TWICE PER DAY
     Route: 048
     Dates: start: 20030101
  2. CORENITEC (ENALAPRIL+HYDROCHLOROTHIAZIDE) [Suspect]
     Indication: HYPERTENSION
     Route: 048
     Dates: end: 20091101
  3. DIOVAN HCT [Suspect]
     Indication: HYPERTENSION
     Route: 048
     Dates: start: 20091101

REACTIONS (7)
  - BRADYCARDIA [None]
  - CONJUNCTIVITIS [None]
  - DIZZINESS [None]
  - DRUG INTERACTION [None]
  - ERECTILE DYSFUNCTION [None]
  - LABILE BLOOD PRESSURE [None]
  - SEXUAL DYSFUNCTION [None]
